FAERS Safety Report 5272101-X (Version None)
Quarter: 2007Q1

REPORT INFORMATION
  Report Type: 
  Country: None (occurrence: None)
  Receive Date: 20070320
  Receipt Date: 20070320
  Transmission Date: 20070707
  Serious: Yes (Other)
  Sender: FDA-Public Use
  Company Number: None

PATIENT
  Sex: Female
  Weight: 79.3795 kg

DRUGS (1)
  1. AMBIEN [Suspect]
     Indication: INSOMNIA
     Dosage: 1 A BED TIME
     Dates: start: 20050101, end: 20060901

REACTIONS (7)
  - ABNORMAL SLEEP-RELATED EVENT [None]
  - AMNESIA [None]
  - ARTHRALGIA [None]
  - CONTUSION [None]
  - EXCORIATION [None]
  - FALL [None]
  - PAIN IN EXTREMITY [None]
